FAERS Safety Report 5918679-1 (Version None)
Quarter: 2008Q4

REPORT INFORMATION
  Report Type: 
  Country: None (occurrence: None)
  Receive Date: 20081015
  Receipt Date: 20080530
  Transmission Date: 20090506
  Serious: No
  Sender: FDA-Public Use
  Company Number: US-ASTRAZENECA-2008UW11000

PATIENT

DRUGS (2)
  1. SYMBICORT [Suspect]
     Dosage: 80/4.5 UG
     Route: 055
  2. ALBUTEROL [Concomitant]

REACTIONS (1)
  - FEELING JITTERY [None]
